FAERS Safety Report 5196745-9 (Version None)
Quarter: 2006Q4

REPORT INFORMATION
  Report Type: 
  Country: None (occurrence: None)
  Receive Date: 20061227
  Receipt Date: 20061128
  Transmission Date: 20070319
  Serious: Yes (Death, Other)
  Sender: FDA-Public Use
  Company Number: 2006150073

PATIENT
  Sex: Female

DRUGS (2)
  1. BEXTRA [Suspect]
     Dosage: ORAL
     Route: 048
     Dates: start: 20010601, end: 20010828
  2. VIOXX [Suspect]
     Dosage: ORAL
     Route: 048
     Dates: start: 20010601, end: 20010828

REACTIONS (1)
  - MYOCARDIAL INFARCTION [None]
